FAERS Safety Report 4443686-8 (Version None)
Quarter: 2004Q3

REPORT INFORMATION
  Report Type: 
  Country: None (occurrence: None)
  Receive Date: 20040903
  Receipt Date: 20040903
  Transmission Date: 20050211
  Serious: Yes (Disabling, Other)
  Sender: FDA-Public Use
  Company Number: None

PATIENT
  Age: 64 Year
  Sex: Male
  Weight: 95.2554 kg

DRUGS (2)
  1. LIPITOR [Suspect]
     Indication: BLOOD CHOLESTEROL INCREASED
     Dosage: ONE TABLET DAILY ORAL
     Route: 048
     Dates: start: 20010815, end: 20040501
  2. ZOLOFT [Concomitant]

REACTIONS (3)
  - DEPRESSION [None]
  - LOSS OF EMPLOYMENT [None]
  - MENTAL IMPAIRMENT [None]
